FAERS Safety Report 9387121 (Version 1)
Quarter: 2013Q3

REPORT INFORMATION
  Report Type: Spontaneous
  Country: GB (occurrence: None)
  Receive Date: 20130702
  Receipt Date: 20130702
  Transmission Date: 20140515
  Serious: Yes (Other)
  Sender: FDA-Public Use
  Company Number: AUR-APL-2013-05343

PATIENT
  Age: 66 Year
  Sex: Female

DRUGS (2)
  1. CITALOPRAM [Suspect]
     Indication: MAJOR DEPRESSION
     Route: 048
  2. OLANZAPINE (OLANZAPINE) [Suspect]
     Indication: MAJOR DEPRESSION
     Route: 048

REACTIONS (2)
  - Electrocardiogram QT prolonged [None]
  - Off label use [None]
